FAERS Safety Report 20537839 (Version 1)
Quarter: 2022Q1

REPORT INFORMATION
  Report Type: Spontaneous
  Country: CN (occurrence: CN)
  Receive Date: 20220302
  Receipt Date: 20220302
  Transmission Date: 20220423
  Serious: Yes (Other)
  Sender: FDA-Public Use
  Company Number: CN-009507513-2202CHN008134

PATIENT
  Age: 37 Year
  Sex: Female
  Weight: 40 kg

DRUGS (4)
  1. CILASTATIN SODIUM\IMIPENEM [Suspect]
     Active Substance: CILASTATIN SODIUM\IMIPENEM
     Indication: Pneumonia klebsiella
     Dosage: 1 GRAM, TID
     Route: 041
     Dates: start: 20220124, end: 20220125
  2. VFEND [Suspect]
     Active Substance: VORICONAZOLE
     Indication: Anti-infective therapy
     Dosage: 300 MILLIGRAM, BID
     Route: 041
     Dates: start: 20220124, end: 202201
  3. VFEND [Suspect]
     Active Substance: VORICONAZOLE
     Dosage: 200 MILLIGRAM, Q12H
     Route: 041
     Dates: start: 202201, end: 20220127
  4. VANCOMYCIN [Suspect]
     Active Substance: VANCOMYCIN
     Indication: Anti-infective therapy
     Dosage: 1.0 (UNIT NOT PROVIDED), Q12H
     Dates: start: 20220124, end: 2022

REACTIONS (1)
  - Delirium [Recovering/Resolving]

NARRATIVE: CASE EVENT DATE: 20220125
